FAERS Safety Report 9210323 (Version 3)
Quarter: 2013Q3

REPORT INFORMATION
  Report Type: Report from Study
  Country: KR (occurrence: KR)
  Receive Date: 20130404
  Receipt Date: 20130701
  Transmission Date: 20140515
  Serious: Yes (Hospitalization, Other)
  Sender: FDA-Public Use
  Company Number: KR-ELI_LILLY_AND_COMPANY-KR201303009370

PATIENT
  Age: 65 Year
  Sex: Male

DRUGS (4)
  1. LISPRO 25LIS75NPL KWIKPEN / MIRIOPEN [Suspect]
     Indication: TYPE 2 DIABETES MELLITUS
     Dosage: 22 U, BID
     Dates: start: 20130306
  2. LISPRO 25LIS75NPL KWIKPEN / MIRIOPEN [Suspect]
     Dosage: 24 U, EACH MORNING
  3. LISPRO 25LIS75NPL KWIKPEN / MIRIOPEN [Suspect]
     Dosage: 20 U, EACH EVENING
  4. LISPRO 25LIS75NPL KWIKPEN / MIRIOPEN [Suspect]
     Dosage: 28 U, BID

REACTIONS (7)
  - Oesophageal varices haemorrhage [Recovered/Resolved]
  - Blood glucose increased [Unknown]
  - Decreased appetite [Unknown]
  - Weight decreased [Unknown]
  - Dizziness [Recovered/Resolved]
  - Cold sweat [Recovered/Resolved]
  - Hunger [Recovered/Resolved]
